FAERS Safety Report 18097945 (Version 1)
Quarter: 2020Q3

REPORT INFORMATION
  Report Type: Spontaneous
  Country: US (occurrence: US)
  Receive Date: 20200730
  Receipt Date: 20200730
  Transmission Date: 20201103
  Serious: No
  Sender: FDA-Public Use
  Company Number: None

PATIENT
  Age: 38 Year
  Sex: Female
  Weight: 85.7 kg

DRUGS (2)
  1. KANJINTI [Suspect]
     Active Substance: TRASTUZUMAB-ANNS
     Indication: BREAST CANCER
     Dates: start: 20200730
  2. KANJINTI ? TRANSJUZUMAB [Concomitant]
     Dates: start: 20200730, end: 20200730

REACTIONS (1)
  - Rash [None]

NARRATIVE: CASE EVENT DATE: 20200730
